FAERS Safety Report 8135633-2 (Version None)
Quarter: 2012Q1

REPORT INFORMATION
  Report Type: 
  Country: None (occurrence: None)
  Receive Date: 20120113
  Receipt Date: 20111111
  Transmission Date: 20120608
  Serious: No
  Sender: FDA-Public Use
  Company Number: AE-2011-003390

PATIENT
  Age: 62 Year
  Sex: Female
  Weight: 69.8539 kg

DRUGS (6)
  1. INCIVEK [Suspect]
     Dosage: 2250 MG (750 MG, 3 IN 1 D), ORAL
     Route: 048
     Dates: start: 20111028, end: 20111111
  2. SYNTHROID [Concomitant]
  3. NEXIUM [Concomitant]
  4. RIBAVIRIN [Concomitant]
  5. CYMBALTA [Concomitant]
  6. PEG-INTRON [Concomitant]

REACTIONS (2)
  - BRONCHITIS [None]
  - VOMITING [None]
